FAERS Safety Report 24139238 (Version 4)
Quarter: 2025Q2

REPORT INFORMATION
  Report Type: Report from Study
  Country: CA (occurrence: CA)
  Receive Date: 20240726
  Receipt Date: 20250604
  Transmission Date: 20250717
  Serious: Yes (Other)
  Sender: CSL BEHRING
  Company Number: CA-BEH-2024174711

PATIENT
  Age: 40 Year
  Sex: Female
  Weight: 94 kg

DRUGS (5)
  1. HIZENTRA [Suspect]
     Active Substance: HUMAN IMMUNOGLOBULIN G
     Indication: Secondary immunodeficiency
     Dosage: 7 G, QW
     Route: 065
     Dates: start: 20240514, end: 20240710
  2. HIZENTRA [Suspect]
     Active Substance: HUMAN IMMUNOGLOBULIN G
     Dosage: PRODUCT STRENGTH: 7 G, QW
     Route: 065
     Dates: start: 20240514
  3. HIZENTRA [Suspect]
     Active Substance: HUMAN IMMUNOGLOBULIN G
     Dosage: PRODUCT STRENGTH: 7 G, QW
     Route: 058
     Dates: start: 20250308
  4. HIZENTRA [Suspect]
     Active Substance: HUMAN IMMUNOGLOBULIN G
     Dosage: 7 G, QW
     Route: 058
     Dates: start: 20240514
  5. GONAL-F [Concomitant]
     Active Substance: FOLLITROPIN
     Dates: start: 202405

REACTIONS (7)
  - Abortion spontaneous [Unknown]
  - In vitro fertilisation [Unknown]
  - Maternal exposure during pregnancy [Unknown]
  - Weight decreased [Unknown]
  - Off label use [Unknown]
  - Wrong technique in product usage process [Unknown]
  - Incorrect dose administered [Unknown]

NARRATIVE: CASE EVENT DATE: 20240626
